FAERS Safety Report 11127226 (Version 1)
Quarter: 2015Q2

REPORT INFORMATION
  Report Type: Spontaneous
  Country: US (occurrence: None)
  Receive Date: 20150520
  Receipt Date: 20150520
  Transmission Date: 20150821
  Serious: No
  Sender: FDA-Public Use
  Company Number: None

PATIENT
  Age: 75 Year
  Sex: Female
  Weight: 75.75 kg

DRUGS (2)
  1. LEVOFLOXACIN 750 MG [Suspect]
     Active Substance: LEVOFLOXACIN
     Indication: PNEUMONIA
     Dosage: ?MOUTH
     Route: 048
     Dates: start: 20150207, end: 20150215
  2. LEVOFLOXACIN 750 MG [Suspect]
     Active Substance: LEVOFLOXACIN
     Indication: CHRONIC OBSTRUCTIVE PULMONARY DISEASE
     Dosage: ?MOUTH
     Route: 048
     Dates: start: 20150207, end: 20150215

REACTIONS (2)
  - Peripheral swelling [None]
  - Tendon rupture [None]

NARRATIVE: CASE EVENT DATE: 20150207
